FAERS Safety Report 17345609 (Version 1)
Quarter: 2020Q1

REPORT INFORMATION
  Report Type: Spontaneous
  Country: DE (occurrence: DE)
  Receive Date: 20200129
  Receipt Date: 20200129
  Transmission Date: 20200409
  Serious: Yes (Death, Other)
  Sender: FDA-Public Use
  Company Number: DE-TEVA-2020-DE-1175187

PATIENT
  Age: 74 Year
  Sex: Female
  Weight: 158 kg

DRUGS (3)
  1. FENTANYL. [Suspect]
     Active Substance: FENTANYL
     Dosage: 75 MICROGRAM/H; ADDITIONAL INFO: MISUSE
     Route: 062
  2. METOPROLOL. [Interacting]
     Active Substance: METOPROLOL
     Route: 065
  3. TAPENTADOL [Interacting]
     Active Substance: TAPENTADOL
     Route: 065

REACTIONS (4)
  - Toxicity to various agents [Fatal]
  - Pulmonary oedema [Unknown]
  - Drug interaction [Fatal]
  - Intentional product misuse [Fatal]
